FAERS Safety Report 5778498-6 (Version None)
Quarter: 2008Q2

REPORT INFORMATION
  Report Type: 
  Country: None (occurrence: None)
  Receive Date: 20080618
  Receipt Date: 20080618
  Transmission Date: 20081010
  Serious: Yes (Other)
  Sender: FDA-Public Use
  Company Number: None

PATIENT
  Age: 60 Year
  Sex: Male
  Weight: 200.03 kg

DRUGS (1)
  1. OXALIPLATIN [Suspect]
     Dosage: 170 MG ONCE IV
     Route: 042
     Dates: start: 20080605, end: 20080605

REACTIONS (2)
  - ERYTHEMA [None]
  - PRURITUS [None]
